FAERS Safety Report 7463457-8 (Version None)
Quarter: 2011Q2

REPORT INFORMATION
  Report Type: 
  Country: None (occurrence: None)
  Receive Date: 20110506
  Receipt Date: 20110504
  Transmission Date: 20111010
  Serious: Yes (Death, Hospitalization)
  Sender: FDA-Public Use
  Company Number: Z0004110A

PATIENT
  Sex: Female
  Weight: 53 kg

DRUGS (1)
  1. LEUKERAN [Suspect]
     Route: 048
     Dates: start: 20100420

REACTIONS (1)
  - PNEUMOCOCCAL SEPSIS [None]
